FAERS Safety Report 24103320 (Version 1)
Quarter: 2024Q3

REPORT INFORMATION
  Report Type: Report from Study
  Country: CA (occurrence: None)
  Receive Date: 20240717
  Receipt Date: 20240717
  Transmission Date: 20241017
  Serious: Yes (Hospitalization)
  Sender: ASTRAZENECA
  Company Number: 2020SE08682

PATIENT
  Age: 26775 Day
  Sex: Male

DRUGS (1)
  1. IMFINZI [Suspect]
     Active Substance: DURVALUMAB
     Indication: Non-small cell lung cancer stage IIIA
     Dosage: 835.0MG UNKNOWN
     Route: 042
     Dates: start: 20191008

REACTIONS (8)
  - Cardiac disorder [Unknown]
  - Cardiac flutter [Recovered/Resolved]
  - Rhinorrhoea [Unknown]
  - General physical health deterioration [Unknown]
  - Fatigue [Not Recovered/Not Resolved]
  - Fatigue [Not Recovered/Not Resolved]
  - Appetite disorder [Not Recovered/Not Resolved]
  - Malaise [Not Recovered/Not Resolved]

NARRATIVE: CASE EVENT DATE: 20200108
